FAERS Safety Report 15405531 (Version 1)
Quarter: 2018Q3

REPORT INFORMATION
  Report Type: Spontaneous
  Country: FR (occurrence: FR)
  Receive Date: 20180920
  Receipt Date: 20180920
  Transmission Date: 20181010
  Serious: Yes (Other)
  Sender: FDA-Public Use
  Company Number: FR-TEVA-2018-FR-956163

PATIENT
  Age: 71 Year
  Sex: Female

DRUGS (2)
  1. PREDNISONE 30 MG [Concomitant]
  2. COTRIMOXAZOLE [Suspect]
     Active Substance: SULFAMETHOXAZOLE\TRIMETHOPRIM
     Indication: PRODUCT USED FOR UNKNOWN INDICATION
     Dosage: 800 MG/160 MG ONE TABLET ON MONDAY, ONE TABLET ON WEDNESDAY, AND ONE TABLET ON FRIDAY
     Route: 065
     Dates: start: 20180823

REACTIONS (10)
  - Choking sensation [Recovering/Resolving]
  - Diarrhoea [Recovered/Resolved]
  - Burning sensation [Recovering/Resolving]
  - Mouth swelling [Recovering/Resolving]
  - Rash pustular [Recovering/Resolving]
  - Vomiting [Recovered/Resolved]
  - Muscle spasms [Not Recovered/Not Resolved]
  - Hypersensitivity [Recovering/Resolving]
  - Dyspnoea [Recovering/Resolving]
  - Insomnia [Recovering/Resolving]

NARRATIVE: CASE EVENT DATE: 20180910
